FAERS Safety Report 12280775 (Version 9)
Quarter: 2017Q3

REPORT INFORMATION
  Report Type: Report from Study
  Country: US (occurrence: US)
  Receive Date: 20160419
  Receipt Date: 20170824
  Transmission Date: 20171127
  Serious: Yes (Life-Threatening, Hospitalization)
  Sender: FDA-Public Use
  Company Number: US-EISAI MEDICAL RESEARCH-EC-2016-016119

PATIENT
  Age: 70 Year
  Sex: Male
  Weight: 115 kg

DRUGS (8)
  1. LORCASERIN [Suspect]
     Active Substance: LORCASERIN HYDROCHLORIDE
     Indication: WEIGHT CONTROL
     Route: 048
     Dates: start: 20150205, end: 20150515
  2. BENAZEPRIL HCL [Concomitant]
     Active Substance: BENAZEPRIL HYDROCHLORIDE
     Route: 048
     Dates: start: 1998
  3. MULTIVITAMIN [Concomitant]
     Active Substance: VITAMINS
     Route: 048
     Dates: start: 2008
  4. LORCASERIN [Suspect]
     Active Substance: LORCASERIN HYDROCHLORIDE
     Route: 048
     Dates: start: 20150619, end: 20160201
  5. LORCASERIN [Suspect]
     Active Substance: LORCASERIN HYDROCHLORIDE
     Route: 048
     Dates: start: 20160810
  6. SINGULAIR [Concomitant]
     Active Substance: MONTELUKAST SODIUM
     Route: 048
     Dates: start: 2008
  7. ASPIRIN. [Concomitant]
     Active Substance: ASPIRIN
     Route: 048
     Dates: start: 1990
  8. NEXIUM [Concomitant]
     Active Substance: ESOMEPRAZOLE MAGNESIUM
     Route: 048
     Dates: start: 2008

REACTIONS (2)
  - Migraine [Recovering/Resolving]
  - Cardiovascular disorder [Recovered/Resolved with Sequelae]

NARRATIVE: CASE EVENT DATE: 20160201
